FAERS Safety Report 26042548 (Version 3)
Quarter: 2025Q4

REPORT INFORMATION
  Report Type: Report from Study
  Country: US (occurrence: US)
  Receive Date: 20251113
  Receipt Date: 20251216
  Transmission Date: 20260118
  Serious: No
  Sender: MALLINCKRODT
  Company Number: US-MALLINCKRODT-MNK202507115

PATIENT
  Age: 68 Year
  Sex: Female

DRUGS (1)
  1. CORTICOTROPIN [Suspect]
     Active Substance: CORTICOTROPIN
     Indication: Rheumatoid arthritis
     Dosage: 80 UNITS
     Route: 058
     Dates: start: 20251110

REACTIONS (12)
  - Feeling abnormal [Unknown]
  - Restlessness [Unknown]
  - Muscle spasms [Unknown]
  - Pain [Unknown]
  - Fatigue [Unknown]
  - Diarrhoea [Unknown]
  - Insomnia [Unknown]
  - Hypersensitivity [Unknown]
  - Weight increased [Unknown]
  - Abdominal distension [Unknown]
  - Constipation [Unknown]
  - Hypertension [Unknown]

NARRATIVE: CASE EVENT DATE: 20250101
